FAERS Safety Report 10276371 (Version 3)
Quarter: 2014Q3

REPORT INFORMATION
  Report Type: Spontaneous
  Country: US (occurrence: None)
  Receive Date: 20140701
  Receipt Date: 20140725
  Transmission Date: 20150326
  Serious: Yes (Hospitalization, Other)
  Sender: FDA-Public Use
  Company Number: ADR-2014-01091

PATIENT
  Age: 33 Year
  Sex: Female

DRUGS (1)
  1. BACLOFEN INTRATHECAL [Suspect]
     Active Substance: BACLOFEN
     Indication: MUSCLE SPASTICITY

REACTIONS (12)
  - Escherichia infection [None]
  - Knee operation [None]
  - Muscle spasticity [None]
  - Drug ineffective [None]
  - Muscle contracture [None]
  - Speech disorder [None]
  - Fungal infection [None]
  - Fall [None]
  - Device occlusion [None]
  - Condition aggravated [None]
  - Staphylococcal infection [None]
  - Device malfunction [None]

NARRATIVE: CASE EVENT DATE: 20140605
